FAERS Safety Report 4918097-9 (Version None)
Quarter: 2006Q1

REPORT INFORMATION
  Report Type: 
  Country: None (occurrence: None)
  Receive Date: 20060221
  Receipt Date: 20050526
  Transmission Date: 20060701
  Serious: Yes (Hospitalization, Disabling)
  Sender: FDA-Public Use
  Company Number: US-MERCK-0505USA03215

PATIENT
  Age: 53 Year
  Sex: Female
  Weight: 85 kg

DRUGS (6)
  1. VIOXX [Suspect]
     Indication: ARTHRITIS
     Route: 048
     Dates: start: 20000101, end: 20031119
  2. VIOXX [Suspect]
     Route: 048
     Dates: start: 20000101, end: 20030501
  3. VIOXX [Suspect]
     Route: 048
     Dates: start: 20030501, end: 20031101
  4. VIOXX [Suspect]
     Indication: ARTHRALGIA
     Route: 048
     Dates: start: 20000101, end: 20031119
  5. VIOXX [Suspect]
     Route: 048
     Dates: start: 20000101, end: 20030501
  6. VIOXX [Suspect]
     Route: 048
     Dates: start: 20030501, end: 20031101

REACTIONS (4)
  - ANXIETY [None]
  - CEREBRAL HAEMORRHAGE [None]
  - CEREBROVASCULAR ACCIDENT [None]
  - EMOTIONAL DISTRESS [None]
